FAERS Safety Report 26086082 (Version 1)
Quarter: 2025Q4

REPORT INFORMATION
  Report Type: Report from Study
  Country: BR (occurrence: BR)
  Receive Date: 20251125
  Receipt Date: 20251125
  Transmission Date: 20260118
  Serious: Yes (Hospitalization)
  Sender: AMGEN
  Company Number: BR-AMGEN-BRASL2024198465

PATIENT
  Age: 49 Year
  Sex: Female

DRUGS (1)
  1. VECTIBIX [Suspect]
     Active Substance: PANITUMUMAB
     Indication: Gastrointestinal cancer metastatic
     Dosage: UNK, EVERY 15 DAYS,CATHETER
     Route: 042
     Dates: start: 20240712, end: 20250812

REACTIONS (15)
  - Gastrointestinal disorder [Recovering/Resolving]
  - Uterine disorder [Recovering/Resolving]
  - Ovarian disorder [Recovering/Resolving]
  - Ileostomy closure [Recovering/Resolving]
  - Acne [Recovering/Resolving]
  - Nail bed inflammation [Recovering/Resolving]
  - Vomiting [Recovering/Resolving]
  - Oral disorder [Recovering/Resolving]
  - Eating disorder [Recovering/Resolving]
  - Skin burning sensation [Recovering/Resolving]
  - Dermatitis allergic [Recovering/Resolving]
  - Pruritus [Recovering/Resolving]
  - Hair growth abnormal [Recovering/Resolving]
  - Dry skin [Recovering/Resolving]
  - Alopecia [Recovering/Resolving]

NARRATIVE: CASE EVENT DATE: 20240101
